FAERS Safety Report 5743382-0 (Version None)
Quarter: 2008Q2

REPORT INFORMATION
  Report Type: 
  Country: None (occurrence: None)
  Receive Date: 20080515
  Receipt Date: 20080515
  Transmission Date: 20081010
  Serious: Yes (Other)
  Sender: FDA-Public Use
  Company Number: None

PATIENT
  Age: 46 Year
  Sex: Female
  Weight: 56.246 kg

DRUGS (3)
  1. OMEPRAZOLE [Suspect]
     Indication: GASTROOESOPHAGEAL REFLUX DISEASE
     Dosage: 20 MG ONCE DAILY AM  PO
     Route: 048
     Dates: start: 20080301, end: 20080321
  2. ACIPHIX 20 MG [Suspect]
     Dosage: 20 MG ONCE DAILY AM PO
     Route: 048
     Dates: start: 20080322, end: 20080418
  3. SEASONALE [Concomitant]

REACTIONS (1)
  - DYSGEUSIA [None]
